FAERS Safety Report 7529631-7 (Version None)
Quarter: 2011Q2

REPORT INFORMATION
  Report Type: 
  Country: None (occurrence: None)
  Receive Date: 20110607
  Receipt Date: 20110530
  Transmission Date: 20111010
  Serious: Yes (Hospitalization, Other)
  Sender: FDA-Public Use
  Company Number: A0880407A

PATIENT
  Sex: Female

DRUGS (1)
  1. TYKERB [Suspect]
     Dosage: 1250MG PER DAY
     Route: 048
     Dates: start: 20100818, end: 20110428

REACTIONS (5)
  - VOMITING [None]
  - DEHYDRATION [None]
  - DYSPEPSIA [None]
  - NEOPLASM MALIGNANT [None]
  - DIARRHOEA [None]
